FAERS Safety Report 7241806-3 (Version None)
Quarter: 2011Q1

REPORT INFORMATION
  Report Type: 
  Country: None (occurrence: None)
  Receive Date: 20110114
  Receipt Date: 20110104
  Transmission Date: 20110831
  Serious: Yes (Hospitalization)
  Sender: FDA-Public Use
  Company Number: LEO-2011-00010

PATIENT
  Age: 68 Year
  Sex: Female

DRUGS (11)
  1. CEFTRIAXONE [Concomitant]
  2. BISOPROLOL FUMARATE [Concomitant]
  3. HEPARIN SODIUM [Concomitant]
  4. LEVOTHYROX (LEVOTHYROXINE SODIUM) [Concomitant]
  5. ATORVASTATIN CALCIUM [Concomitant]
  6. CEFOTAXIME SODIUM [Concomitant]
  7. COUMADIN [Concomitant]
  8. INNOHEP [Suspect]
     Indication: PULMONARY EMBOLISM
     Dosage: 10000 IU (10000 IU, 1 IN 1 D), SUBCUTANEOUS
     Route: 058
     Dates: start: 20101105, end: 20101115
  9. ASPEGIC (ACETYLSALICYLATE LYSINE) [Concomitant]
  10. DOLIPRANE (PARACETAMOL) (500 MILLIGRAM, TABLETS) [Suspect]
     Indication: PRODUCT USED FOR UNKNOWN INDICATION
     Dosage: 2 DF (2 IN 1 D), ORAL
     Route: 048
     Dates: start: 20101112, end: 20101112
  11. ROVAMYCINE (SPIRAMYCIN) [Concomitant]

REACTIONS (2)
  - WHITE BLOOD CELL COUNT DECREASED [None]
  - NEUTROPENIA [None]
